FAERS Safety Report 8843798 (Version 2)
Quarter: 2012Q4

REPORT INFORMATION
  Report Type: Report from Study
  Country: US (occurrence: US)
  Receive Date: 20121016
  Receipt Date: 20121108
  Transmission Date: 20130627
  Serious: Yes (Hospitalization)
  Sender: FDA-Public Use
  Company Number: US-MERCK-1210USA005980

PATIENT
  Age: 28 Year
  Sex: Male
  Weight: 63.1 kg

DRUGS (4)
  1. BLINDED PLACEBO [Suspect]
     Indication: PANCREAS ISLET CELL TRANSPLANT
     Dosage: UNK
     Route: 048
     Dates: start: 20110930
  2. BLINDED POST TRIAL THERAPY [Suspect]
     Indication: PANCREAS ISLET CELL TRANSPLANT
     Dosage: UNK
     Route: 048
     Dates: start: 20110930
  3. BLINDED PRE TRIAL THERAPY [Suspect]
     Indication: PANCREAS ISLET CELL TRANSPLANT
     Dosage: UNK
     Route: 048
     Dates: start: 20110930
  4. BLINDED SITAGLIPTIN PHOSPHATE [Suspect]
     Indication: PANCREAS ISLET CELL TRANSPLANT
     Dosage: UNK
     Route: 048
     Dates: start: 20110930

REACTIONS (1)
  - Dehydration [Recovered/Resolved]
